FAERS Safety Report 7225142-7 (Version None)
Quarter: 2011Q1

REPORT INFORMATION
  Report Type: 
  Country: None (occurrence: None)
  Receive Date: 20110113
  Receipt Date: 20110104
  Transmission Date: 20110831
  Serious: Yes (Disabling, Other)
  Sender: FDA-Public Use
  Company Number: A0902839A

PATIENT
  Age: 59 Year
  Sex: Female

DRUGS (4)
  1. METFORMIN [Concomitant]
  2. ACCOLATE [Concomitant]
  3. ADVAIR HFA [Suspect]
     Indication: ASTHMA
     Dosage: 1PUFF TWICE PER DAY
     Route: 055
     Dates: start: 20060101
  4. LISINOPRIL [Concomitant]

REACTIONS (6)
  - DYSPNOEA EXERTIONAL [None]
  - HOT FLUSH [None]
  - RESTLESSNESS [None]
  - BLOOD GLUCOSE DECREASED [None]
  - FATIGUE [None]
  - DRUG DISPENSING ERROR [None]
